FAERS Safety Report 11192242 (Version 1)
Quarter: 2015Q2

REPORT INFORMATION
  Report Type: Spontaneous
  Country: JP (occurrence: JP)
  Receive Date: 20150616
  Receipt Date: 20150616
  Transmission Date: 20150821
  Serious: Yes (Hospitalization)
  Sender: FDA-Public Use
  Company Number: JP-PFIZER INC-2015195734

PATIENT
  Age: 58 Year
  Sex: Female

DRUGS (1)
  1. LYRICA [Suspect]
     Active Substance: PREGABALIN
     Indication: FIBROMYALGIA
     Dosage: 225 MG, DAILY ((100 MG IN THE MORNING AND 125 MG IN THE EVENING)
     Route: 048

REACTIONS (10)
  - Herpes zoster [Unknown]
  - Swelling face [Recovered/Resolved]
  - Swollen tongue [Unknown]
  - Stomatitis [Unknown]
  - Urine output decreased [Unknown]
  - Joint range of motion decreased [Unknown]
  - Vision blurred [Unknown]
  - Insomnia [Unknown]
  - Weight increased [Unknown]
  - Urticaria [Unknown]
